FAERS Safety Report 8240146-3 (Version None)
Quarter: 2012Q1

REPORT INFORMATION
  Report Type: 
  Country: None (occurrence: None)
  Receive Date: 20120327
  Receipt Date: 20120327
  Transmission Date: 20120608
  Serious: Yes (Life-Threatening, Hospitalization, Disabling, Other)
  Sender: FDA-Public Use
  Company Number: None

PATIENT
  Sex: Female
  Weight: 127.0072 kg

DRUGS (8)
  1. CYMBALTA [Suspect]
     Indication: PAIN MANAGEMENT
     Dosage: 60 MG ONCE A DAY ORAL
     Route: 048
     Dates: start: 20080608
  2. CYMBALTA [Suspect]
     Indication: DEPRESSION
     Dosage: 60 MG ONCE A DAY ORAL
     Route: 048
     Dates: start: 20080608
  3. CYMBALTA [Suspect]
     Indication: PAIN MANAGEMENT
     Dosage: 60 MG ONCE A DAY ORAL
     Route: 048
     Dates: start: 20111125
  4. CYMBALTA [Suspect]
     Indication: DEPRESSION
     Dosage: 60 MG ONCE A DAY ORAL
     Route: 048
     Dates: start: 20111125
  5. OXYCONTIN [Concomitant]
  6. MELOXICAM [Concomitant]
  7. XANEX [Concomitant]
  8. LEVOTHYROXINE SODIUM [Concomitant]

REACTIONS (2)
  - BILE DUCT CANCER [None]
  - SKIN DISCOLOURATION [None]
